FAERS Safety Report 9011374 (Version 1)
Quarter: 2013Q1

REPORT INFORMATION
  Report Type: Spontaneous
  Country: US (occurrence: US)
  Receive Date: 20130108
  Receipt Date: 20130108
  Transmission Date: 20140127
  Serious: No
  Sender: FDA-Public Use
  Company Number: US-PFIZER INC-2013004112

PATIENT
  Age: 42 Year
  Sex: Female

DRUGS (4)
  1. ADVIL COLD AND SINUS [Suspect]
     Indication: NASAL CONGESTION
     Dosage: UNK
     Dates: start: 20120921
  2. ADVIL COLD AND SINUS [Suspect]
     Indication: HEADACHE
  3. LOSARTAN POTASSIUM [Suspect]
     Indication: BLOOD PRESSURE
     Dosage: 12.5 MG, DAILY
     Route: 048
     Dates: start: 20120821, end: 20120917
  4. LOSARTAN [Suspect]
     Dosage: UNK
     Dates: start: 20120917

REACTIONS (5)
  - Drug ineffective [Unknown]
  - Blood pressure increased [Not Recovered/Not Resolved]
  - Headache [Not Recovered/Not Resolved]
  - Nasal congestion [Not Recovered/Not Resolved]
  - Mycotic allergy [Not Recovered/Not Resolved]
